FAERS Safety Report 11463937 (Version 1)
Quarter: 2015Q3

REPORT INFORMATION
  Report Type: Spontaneous
  Country: US (occurrence: US)
  Receive Date: 20150831
  Receipt Date: 20150831
  Transmission Date: 20151125
  Serious: No
  Sender: FDA-Public Use
  Company Number: US-ELI_LILLY_AND_COMPANY-US201105005265

PATIENT
  Age: 61 Year
  Sex: Female

DRUGS (2)
  1. EXFORGE [Concomitant]
     Active Substance: AMLODIPINE BESYLATE\VALSARTAN
     Indication: HYPERTENSION
  2. CYMBALTA [Suspect]
     Active Substance: DULOXETINE HYDROCHLORIDE
     Indication: DEPRESSION
     Dosage: 20 MG, QD

REACTIONS (7)
  - Headache [Unknown]
  - Drug hypersensitivity [Unknown]
  - Malaise [Unknown]
  - Back pain [Unknown]
  - Diarrhoea [Unknown]
  - Intentional product misuse [Unknown]
  - Abdominal discomfort [Unknown]
